FAERS Safety Report 5207776-4 (Version None)
Quarter: 2006Q4

REPORT INFORMATION
  Report Type: 
  Country: None (occurrence: None)
  Receive Date: 20061030
  Receipt Date: 20060807
  Transmission Date: 20070319
  Serious: No
  Sender: FDA-Public Use
  Company Number: 255893

PATIENT
  Age: 70 Year
  Sex: Male

DRUGS (4)
  1. LEVEMIR [Suspect]
     Indication: INSULIN-REQUIRING TYPE II DIABETES MELLITUS
     Dosage: SUBCUTANEOUS
     Route: 058
  2. COUMADIN [Concomitant]
  3. HYZAAR [Concomitant]
  4. LASIX [Concomitant]

REACTIONS (1)
  - COLD SWEAT [None]
